FAERS Safety Report 10608672 (Version 1)
Quarter: 2014Q4

REPORT INFORMATION
  Report Type: Spontaneous
  Country: GB (occurrence: GB)
  Receive Date: 20141125
  Receipt Date: 20141125
  Transmission Date: 20150529
  Serious: Yes (Hospitalization)
  Sender: FDA-Public Use
  Company Number: GB-ACTAVIS-2014-25377

PATIENT
  Age: 36 Year
  Sex: Male

DRUGS (5)
  1. DICLOFENAC (UNKNOWN) [Suspect]
     Active Substance: DICLOFENAC SODIUM
     Indication: BACK PAIN
     Dosage: 75 MG, BID
     Route: 048
     Dates: start: 20140905, end: 20140926
  2. LANSOPRAZOLE (UNKNOWN) [Suspect]
     Active Substance: LANSOPRAZOLE
     Indication: PRODUCT USED FOR UNKNOWN INDICATION
     Dosage: 15 MG, DAILY (1 TWICE FOR ONE WEEK THEN 1 DAILY)
     Route: 048
     Dates: start: 20090902
  3. FLUOXETINE [Concomitant]
     Active Substance: FLUOXETINE\FLUOXETINE HYDROCHLORIDE
     Indication: DEPRESSION
     Dosage: 20 MG, DAILY
     Route: 048
     Dates: start: 20091101
  4. ETORICOXIB [Suspect]
     Active Substance: ETORICOXIB
     Indication: BACK PAIN
     Dosage: 90 MG, UNK
     Route: 048
     Dates: start: 20090902
  5. GAVISCON                           /00237601/ [Concomitant]
     Active Substance: ALUMINUM HYDROXIDE\MAGNESIUM CARBONATE
     Indication: DYSPEPSIA
     Dosage: 10 ML, PRN
     Route: 048
     Dates: start: 20090902

REACTIONS (2)
  - Liver disorder [Recovering/Resolving]
  - Abdominal pain [Recovered/Resolved]
